FAERS Safety Report 22993731 (Version 3)
Quarter: 2023Q4

REPORT INFORMATION
  Report Type: Spontaneous
  Country: US (occurrence: US)
  Receive Date: 20230927
  Receipt Date: 20231013
  Transmission Date: 20240110
  Serious: Yes (Hospitalization, Other)
  Sender: FDA-Public Use
  Company Number: US-ELI_LILLY_AND_COMPANY-US202309009634

PATIENT
  Age: 76 Year
  Sex: Female
  Weight: 110.2 kg

DRUGS (17)
  1. TRULICITY [Suspect]
     Active Substance: DULAGLUTIDE
     Indication: Type 2 diabetes mellitus
     Dosage: 0.75 MG, WEEKLY (1/W)
     Route: 058
     Dates: start: 202303
  2. JARDIANCE [Suspect]
     Active Substance: EMPAGLIFLOZIN
     Indication: Type 2 diabetes mellitus
     Dosage: 10 MG, DAILY
     Route: 048
     Dates: start: 202303
  3. REPAGLINIDE [Suspect]
     Active Substance: REPAGLINIDE
     Indication: Type 2 diabetes mellitus
     Dosage: 0.5 MG, DAILY
     Route: 048
     Dates: start: 202303
  4. TORSEMIDE [Suspect]
     Active Substance: TORSEMIDE
     Indication: Oedema peripheral
     Dosage: 20 MG, 4/W
     Route: 048
     Dates: start: 202303
  5. SERTRALINE [Concomitant]
     Active Substance: SERTRALINE HYDROCHLORIDE
     Indication: Anxiety
     Dosage: 50 MG, DAILY
     Route: 048
     Dates: start: 2015
  6. VITAMIN D NOS [Concomitant]
     Active Substance: VITAMIN D NOS
     Indication: Vitamin D deficiency
     Dosage: 1 DOSAGE FORM, DAILY
     Route: 048
     Dates: start: 2000
  7. FERROUS SULFATE [Concomitant]
     Active Substance: FERROUS SULFATE
     Indication: Prophylaxis
     Dosage: 235 MG, DAILY
     Route: 048
     Dates: start: 2000
  8. ATORVASTATIN [Concomitant]
     Active Substance: ATORVASTATIN
     Indication: Hyperlipidaemia
     Dosage: 40 MG, DAILY
     Route: 048
     Dates: start: 202303
  9. TROSPIUM [Concomitant]
     Active Substance: TROSPIUM
     Indication: Urinary incontinence
     Dosage: 2 MG, DAILY
     Route: 048
     Dates: start: 2017
  10. GABAPENTIN [Concomitant]
     Active Substance: GABAPENTIN
     Indication: Neuropathy peripheral
     Dosage: 300 MG, DAILY
     Route: 048
     Dates: start: 202303
  11. FLUTICASONE [Concomitant]
     Active Substance: FLUTICASONE
     Indication: Seasonal allergy
     Dosage: 50 UG, DAILY
     Route: 045
     Dates: start: 202304
  12. SODIUM FLUORIDE [Concomitant]
     Active Substance: SODIUM FLUORIDE
     Indication: Prophylaxis
     Dosage: 0.5 MG, DAILY
     Route: 048
     Dates: start: 2000
  13. DONEPEZIL [Concomitant]
     Active Substance: DONEPEZIL
     Indication: Dementia Alzheimer^s type
     Dosage: 10 MG, DAILY
     Route: 048
     Dates: start: 2020
  14. LEVOTHYROXINE [Concomitant]
     Active Substance: LEVOTHYROXINE
     Indication: Hypothyroidism
     Dosage: 75 UG, DAILY
     Route: 048
     Dates: start: 2010
  15. MEMANTINE [Concomitant]
     Active Substance: MEMANTINE
     Indication: Dementia Alzheimer^s type
     Dosage: 14 MG, DAILY
     Route: 048
     Dates: start: 202304
  16. VITAMIN D3 [Concomitant]
     Active Substance: CHOLECALCIFEROL
     Indication: Prophylaxis
     Dosage: 5000 MG, DAILY
     Route: 048
     Dates: start: 2000
  17. HYDROCHLOROTHIAZIDE [Concomitant]
     Active Substance: HYDROCHLOROTHIAZIDE
     Indication: Hypertension
     Dosage: 25 MG, DAILY
     Route: 048
     Dates: start: 202301, end: 20230811

REACTIONS (7)
  - Hypokalaemia [Recovered/Resolved]
  - Dyspnoea [Unknown]
  - Renal impairment [Unknown]
  - Acute kidney injury [Unknown]
  - Atrioventricular block first degree [Unknown]
  - Urinary tract infection [Recovered/Resolved]
  - Pruritus [Unknown]

NARRATIVE: CASE EVENT DATE: 20230601
